FAERS Safety Report 5493632-3 (Version None)
Quarter: 2007Q4

REPORT INFORMATION
  Report Type: 
  Country: None (occurrence: None)
  Receive Date: 20071015
  Receipt Date: 20070903
  Transmission Date: 20080405
  Serious: No
  Sender: FDA-Public Use
  Company Number: 2007SP003070

PATIENT
  Age: 42 Year
  Sex: Female
  Weight: 111.1313 kg

DRUGS (4)
  1. LUNESTA [Suspect]
     Indication: INSOMNIA
     Dosage: 3 MG; 1X; ORAL
     Route: 048
     Dates: start: 20070902, end: 20070902
  2. ANTIHYPERTENSIVES [Concomitant]
  3. ACETYLSALICYLIC ACID SRT [Concomitant]
  4. CHOLESTEROL- AND TRIGLYCERIDE REDUCERS [Concomitant]

REACTIONS (1)
  - DYSGEUSIA [None]
